FAERS Safety Report 10543160 (Version 1)
Quarter: 2014Q4

REPORT INFORMATION
  Report Type: Spontaneous
  Country: US (occurrence: US)
  Receive Date: 20141027
  Receipt Date: 20141027
  Transmission Date: 20150529
  Serious: Yes (Hospitalization)
  Sender: FDA-Public Use
  Company Number: US-JNJFOC-20141013407

PATIENT
  Age: 3 Year
  Sex: Female

DRUGS (2)
  1. TOPAMAX [Suspect]
     Active Substance: TOPIRAMATE
     Indication: SEIZURE
     Route: 048
     Dates: start: 201205
  2. TOPAMAX [Suspect]
     Active Substance: TOPIRAMATE
     Indication: SEIZURE
     Dosage: TWICE A DAY AS 75 MG IN THE MORNING AND 87.5 MG AT BEDTIME
     Route: 048

REACTIONS (4)
  - Hospitalisation [Unknown]
  - Seizure [Unknown]
  - Malabsorption [Unknown]
  - Vomiting [Unknown]

NARRATIVE: CASE EVENT DATE: 20120515
